FAERS Safety Report 6124423-8 (Version None)
Quarter: 2009Q1

REPORT INFORMATION
  Report Type: 
  Country: None (occurrence: None)
  Receive Date: 20090319
  Receipt Date: 20090311
  Transmission Date: 20090719
  Serious: Yes (Hospitalization)
  Sender: FDA-Public Use
  Company Number: TR-ASTRAZENECA-2009AC00819

PATIENT
  Age: 37 Year
  Sex: Male

DRUGS (5)
  1. BUPIVACAINE [Suspect]
     Indication: ANAESTHESIA
     Dosage: 6 MG OF 5 MG ML-1
     Route: 037
  2. FENTANYL-25 [Suspect]
     Indication: ANAESTHESIA
     Dosage: 10 UG OF FENTANYL IN 0.2 ML
     Route: 037
  3. MAGNESIUM SULFATE [Concomitant]
     Dosage: 50 MG MAGNESIUM IN 3 ML OF 0.9 % SODIUM CHLORIDE
     Route: 037
  4. MIDAZOLAM HCL [Concomitant]
     Indication: PREMEDICATION
     Route: 042
  5. SODIUM CHLORIDE [Concomitant]
     Dosage: 15 - 20 MG.KG
     Route: 042

REACTIONS (1)
  - POST LUMBAR PUNCTURE SYNDROME [None]
